FAERS Safety Report 15991061 (Version 1)
Quarter: 2019Q1

REPORT INFORMATION
  Report Type: Spontaneous
  Country: US (occurrence: US)
  Receive Date: 20190221
  Receipt Date: 20190221
  Transmission Date: 20190418
  Serious: No
  Sender: FDA-Public Use
  Company Number: US-PERRIGO-18US007349

PATIENT
  Age: 60 Year
  Sex: Female
  Weight: 50.34 kg

DRUGS (7)
  1. PROBIOTICS NOS [Concomitant]
     Active Substance: PROBIOTICS NOS
     Indication: ROUTINE HEALTH MAINTENANCE
     Dosage: UNK
     Route: 065
     Dates: start: 20180714
  2. ENZYMES [Concomitant]
     Indication: DYSPEPSIA
     Dosage: UNK
     Route: 065
  3. KETOCONAZOLE. [Suspect]
     Active Substance: KETOCONAZOLE
     Dosage: 10 ML, SINGLE
     Route: 061
     Dates: start: 20180712, end: 20180712
  4. KETOCONAZOLE. [Suspect]
     Active Substance: KETOCONAZOLE
     Indication: ALOPECIA
     Dosage: 10 ML, SINGLE
     Route: 061
     Dates: start: 20180612, end: 20180612
  5. ALDACTONE [Concomitant]
     Active Substance: SPIRONOLACTONE
     Indication: ALOPECIA
     Dosage: UNK
     Route: 065
  6. KETOCONAZOLE. [Suspect]
     Active Substance: KETOCONAZOLE
     Dosage: 10 ML, SINGLE
     Route: 061
     Dates: start: 20180630, end: 20180630
  7. CICLOPIROX OLAMINE. [Concomitant]
     Active Substance: CICLOPIROX OLAMINE
     Indication: NAIL DISORDER
     Dosage: UNK
     Route: 065
     Dates: start: 201807

REACTIONS (2)
  - Off label use [Recovered/Resolved]
  - Condition aggravated [Not Recovered/Not Resolved]

NARRATIVE: CASE EVENT DATE: 20180612
